FAERS Safety Report 5014362-8 (Version None)
Quarter: 2006Q2

REPORT INFORMATION
  Report Type: 
  Country: None (occurrence: None)
  Receive Date: 20060411
  Receipt Date: 20060202
  Transmission Date: 20061013
  Serious: No
  Sender: FDA-Public Use
  Company Number: A03200600669

PATIENT
  Age: 64 Year
  Sex: Male

DRUGS (3)
  1. UROXATRAL [Suspect]
     Indication: BENIGN PROSTATIC HYPERPLASIA
     Dosage: NI UNK - ORAL
     Route: 048
     Dates: start: 20051201
  2. ACETYLSALICYLIC ACID SRT [Concomitant]
  3. VALSARTAN [Concomitant]

REACTIONS (1)
  - HYPERTENSION [None]
